FAERS Safety Report 5538363-6 (Version None)
Quarter: 2007Q4

REPORT INFORMATION
  Report Type: 
  Country: None (occurrence: None)
  Receive Date: 20071205
  Receipt Date: 20071120
  Transmission Date: 20080405
  Serious: Yes (Death, Congenital Anomaly, Other)
  Sender: FDA-Public Use
  Company Number: 018215

PATIENT
  Age: 10 Day
  Sex: Male

DRUGS (1)
  1. CLARAVIS [Suspect]
     Dosage: 40 MD, QD, TRANSPLACENTAL
     Route: 064
     Dates: start: 20070124, end: 20070224

REACTIONS (7)
  - CONGENITAL CENTRAL NERVOUS SYSTEM ANOMALY [None]
  - CONGENITAL CHOROIDAL ANOMALY [None]
  - CONGENITAL HYDROCEPHALUS [None]
  - DRUG EXPOSURE DURING PREGNANCY [None]
  - FOETAL CARDIAC DISORDER [None]
  - HEAD DEFORMITY [None]
  - LOW SET EARS [None]
